FAERS Safety Report 8106327-4 (Version None)
Quarter: 2012Q1

REPORT INFORMATION
  Report Type: 
  Country: None (occurrence: None)
  Receive Date: 20120202
  Receipt Date: 20120125
  Transmission Date: 20120608
  Serious: Yes (Hospitalization, Other)
  Sender: FDA-Public Use
  Company Number: US-BAYER-201023029NA

PATIENT
  Age: 30 Year
  Sex: Female
  Weight: 122.45 kg

DRUGS (10)
  1. METHYLPREDNISOLONE [Concomitant]
  2. AZITHROMYCIN [Concomitant]
  3. YAZ [Suspect]
     Dosage: UNK UNK, QD
     Route: 048
     Dates: start: 20070701, end: 20080417
  4. NASONEX [Concomitant]
     Indication: MULTIPLE ALLERGIES
     Dosage: UNK
     Dates: start: 20070101
  5. XYZAL [Concomitant]
  6. ALLEGRA [Concomitant]
     Indication: MULTIPLE ALLERGIES
     Dosage: UNK
     Dates: start: 20070101
  7. FEXOFENADINE HYDROCHLORIDE [Concomitant]
  8. ANTIBIOTICS [Concomitant]
     Indication: SINUSITIS
     Dosage: UNK
     Dates: start: 20040101, end: 20100101
  9. HYDROCHLOROTHIAZIDE [Concomitant]
  10. LEVAQUIN [Concomitant]

REACTIONS (5)
  - DYSPNOEA [None]
  - ANXIETY [None]
  - TACHYCARDIA [None]
  - PULMONARY EMBOLISM [None]
  - DILATATION VENTRICULAR [None]
